FAERS Safety Report 4459509-7 (Version None)
Quarter: 2004Q3

REPORT INFORMATION
  Report Type: 
  Country: None (occurrence: None)
  Receive Date: 20040910
  Receipt Date: 20040702
  Transmission Date: 20050211
  Serious: Yes (Other)
  Sender: FDA-Public Use
  Company Number: 2004222092US

PATIENT
  Sex: Male

DRUGS (1)
  1. BEXTRA [Suspect]
     Dosage: 10 MG, ORAL
     Route: 048
     Dates: start: 20040628

REACTIONS (1)
  - GASTROINTESTINAL HAEMORRHAGE [None]
